FAERS Safety Report 13120763 (Version 1)
Quarter: 2017Q1

REPORT INFORMATION
  Report Type: Report from Study
  Country: MX (occurrence: MX)
  Receive Date: 20170117
  Receipt Date: 20170117
  Transmission Date: 20170428
  Serious: Yes (Other)
  Sender: FDA-Public Use
  Company Number: PHHY2017MX003430

PATIENT
  Age: 60 Year
  Sex: Male

DRUGS (1)
  1. CO-DIOVAN [Suspect]
     Active Substance: HYDROCHLOROTHIAZIDE\VALSARTAN
     Indication: HYPERTENSION
     Dosage: 1 DF, Q12H (12.5 MG HYDROCHLOROTHIAZIDE/ 160 MG VALSARTAN) (1 IN MORNING AND 1 IN NIGHT)
     Route: 065
     Dates: start: 20160121

REACTIONS (7)
  - Feeling abnormal [Unknown]
  - Anger [Unknown]
  - Depressed mood [Unknown]
  - Dizziness [Unknown]
  - Anxiety [Unknown]
  - Depressed level of consciousness [Unknown]
  - Inappropriate schedule of drug administration [Not Recovered/Not Resolved]

NARRATIVE: CASE EVENT DATE: 20160121
